FAERS Safety Report 15185346 (Version 1)
Quarter: 2018Q3

REPORT INFORMATION
  Report Type: Spontaneous
  Country: US (occurrence: US)
  Receive Date: 20180723
  Receipt Date: 20180723
  Transmission Date: 20181010
  Serious: No
  Sender: FDA-Public Use
  Company Number: US-GALDERMA-US18017165

PATIENT
  Age: 40 Year
  Sex: Female

DRUGS (5)
  1. PROACTIV MD ADAPALENE ACNE TREATMENT [Suspect]
     Active Substance: ADAPALENE
     Indication: RASH PAPULAR
     Dosage: 0.1%
     Route: 061
     Dates: start: 20180404
  2. PROACTIV MD DAILY OIL CONTROL SPF 30 [Suspect]
     Active Substance: AVOBENZONE\OCTISALATE\OCTOCRYLENE
     Indication: RASH PAPULAR
     Route: 061
     Dates: start: 20180404
  3. PROACTIV SKIN PURIFYING MASK [Concomitant]
     Active Substance: SULFUR
     Indication: RASH PAPULAR
     Route: 061
     Dates: start: 20180404
  4. PROACTIV MD DEEP CLEANSING FACE WASH [Concomitant]
     Active Substance: COSMETICS
     Indication: RASH PAPULAR
     Route: 061
     Dates: start: 20180404
  5. PROACTIV GREEN TEA MOISTURIZER [Concomitant]
     Active Substance: COSMETICS
     Indication: RASH PAPULAR
     Route: 061
     Dates: start: 20180404

REACTIONS (3)
  - Skin discolouration [Recovering/Resolving]
  - Product use in unapproved indication [Recovered/Resolved]
  - Rash papular [Recovering/Resolving]

NARRATIVE: CASE EVENT DATE: 20180404
